FAERS Safety Report 10687351 (Version 2)
Quarter: 2015Q1

REPORT INFORMATION
  Report Type: Report from Study
  Country: US (occurrence: US)
  Receive Date: 20150102
  Receipt Date: 20150123
  Transmission Date: 20150720
  Serious: Yes (Other)
  Sender: FDA-Public Use
  Company Number: PHEH2014US025998

PATIENT
  Age: 30 Year
  Sex: Female

DRUGS (1)
  1. SANDOSTATIN LAR DEPOT [Suspect]
     Active Substance: OCTREOTIDE ACETATE
     Indication: PRODUCT USED FOR UNKNOWN INDICATION
     Dosage: 20 MG, ONE DOSE
     Route: 065
     Dates: start: 20140826

REACTIONS (5)
  - Hyperhidrosis [Unknown]
  - Hot flush [Unknown]
  - Muscle spasms [Unknown]
  - Diarrhoea [Unknown]
  - Carcinoid syndrome [Not Recovered/Not Resolved]

NARRATIVE: CASE EVENT DATE: 20141212
